FAERS Safety Report 21948797 (Version 2)
Quarter: 2023Q1

REPORT INFORMATION
  Report Type: Spontaneous
  Country: AU (occurrence: AU)
  Receive Date: 20230203
  Receipt Date: 20230324
  Transmission Date: 20230418
  Serious: Yes (Other)
  Sender: FDA-Public Use
  Company Number: AU-SERVIER-S22011034

PATIENT
  Age: 33 Year
  Sex: Female

DRUGS (5)
  1. IVABRADINE HYDROCHLORIDE [Suspect]
     Active Substance: IVABRADINE HYDROCHLORIDE
     Indication: Off label use
     Dosage: 5 MILLIGRAM, QD
     Route: 048
     Dates: start: 202208, end: 20221017
  2. IVABRADINE HYDROCHLORIDE [Suspect]
     Active Substance: IVABRADINE HYDROCHLORIDE
     Indication: Postural orthostatic tachycardia syndrome
     Dosage: 2.5 MILLIGRAM, QD
     Route: 048
     Dates: start: 20221018, end: 20221118
  3. ZOLOFT [Concomitant]
     Active Substance: SERTRALINE HYDROCHLORIDE
     Indication: Anxiety
     Dosage: 100 MG, QD
     Route: 048
     Dates: start: 2016
  4. SERETIDE [Concomitant]
     Active Substance: FLUTICASONE PROPIONATE\SALMETEROL XINAFOATE
     Indication: Asthma
     Dosage: 200 MG, QD
  5. CLONAZEPAM [Concomitant]
     Active Substance: CLONAZEPAM
     Indication: Anxiety
     Dosage: 0.25 MG, BID
     Route: 048
     Dates: start: 202109

REACTIONS (7)
  - Abortion spontaneous [Unknown]
  - Nausea [Recovered/Resolved]
  - Dizziness [Recovered/Resolved]
  - Off label use [Recovered/Resolved]
  - Intentional product misuse [Recovered/Resolved]
  - Exposure during pregnancy [Recovered/Resolved]
  - Product use issue [Recovered/Resolved]

NARRATIVE: CASE EVENT DATE: 20220801
